FAERS Safety Report 20622385 (Version 1)
Quarter: 2022Q1

REPORT INFORMATION
  Report Type: Spontaneous
  Country: US (occurrence: US)
  Receive Date: 20220322
  Receipt Date: 20220322
  Transmission Date: 20220424
  Serious: No
  Sender: FDA-Public Use
  Company Number: US-PFIZER INC-2021708300

PATIENT
  Age: 80 Year

DRUGS (1)
  1. CELEBREX [Suspect]
     Active Substance: CELECOXIB
     Indication: Osteoarthritis
     Dosage: UNK

REACTIONS (3)
  - Gait disturbance [Unknown]
  - Hypoacusis [Unknown]
  - Loss of personal independence in daily activities [Unknown]
